FAERS Safety Report 5215873-2 (Version None)
Quarter: 2007Q1

REPORT INFORMATION
  Report Type: 
  Country: None (occurrence: None)
  Receive Date: 20070123
  Receipt Date: 20070116
  Transmission Date: 20070707
  Serious: Yes (Other)
  Sender: FDA-Public Use
  Company Number: SE-GLAXOSMITHKLINE-B0455080A

PATIENT
  Sex: Female

DRUGS (1)
  1. LANVIS [Suspect]
     Indication: ACUTE MYELOID LEUKAEMIA
     Route: 065
     Dates: start: 19920101

REACTIONS (4)
  - HEPATITIS C POSITIVE [None]
  - HEPATOCELLULAR DAMAGE [None]
  - PULMONARY HYPERTENSION [None]
  - VARICES OESOPHAGEAL [None]
